FAERS Safety Report 7030665-X (Version None)
Quarter: 2010Q4

REPORT INFORMATION
  Report Type: 
  Country: None (occurrence: None)
  Receive Date: 20101006
  Receipt Date: 20100924
  Transmission Date: 20110411
  Serious: Yes (Other)
  Sender: FDA-Public Use
  Company Number: US-PFIZER INC-2010122576

PATIENT
  Sex: Male
  Weight: 65.76 kg

DRUGS (2)
  1. VIAGRA [Suspect]
     Indication: ERECTILE DYSFUNCTION
     Dosage: 25 MG, AS NEEDED
     Route: 048
  2. MONOPRIL [Concomitant]
     Dosage: 10 MG, DAILY

REACTIONS (1)
  - PROSTATIC PAIN [None]
